FAERS Safety Report 9088241 (Version 2)
Quarter: 2013Q1

REPORT INFORMATION
  Report Type: Spontaneous
  Country: PR (occurrence: PR)
  Receive Date: 20130201
  Receipt Date: 20130222
  Transmission Date: 20140127
  Serious: Yes (Hospitalization)
  Sender: FDA-Public Use
  Company Number: PR-ABBOTT-12P-131-1029264-00

PATIENT
  Sex: Female
  Weight: 113.5 kg

DRUGS (15)
  1. HUMIRA [Suspect]
     Indication: RHEUMATOID ARTHRITIS
     Route: 058
     Dates: start: 201208, end: 201211
  2. HYZAAR [Concomitant]
     Indication: HYPERTENSION
     Dosage: 100/25 TOTAL DAILY
     Route: 048
     Dates: start: 2004
  3. NORVASC [Concomitant]
     Indication: HYPERTENSION
     Route: 048
     Dates: start: 2004
  4. PREDNISONE [Concomitant]
     Indication: PRODUCT USED FOR UNKNOWN INDICATION
     Route: 048
  5. INDOMETHACIN [Concomitant]
     Indication: PRODUCT USED FOR UNKNOWN INDICATION
     Route: 048
     Dates: start: 20121213
  6. FOLIC ACID [Concomitant]
     Indication: PRODUCT USED FOR UNKNOWN INDICATION
     Route: 048
     Dates: start: 201206
  7. LEVAQUIN [Concomitant]
     Indication: PRODUCT USED FOR UNKNOWN INDICATION
     Route: 048
     Dates: start: 20130104, end: 20130214
  8. FIORICET [Concomitant]
     Indication: PRODUCT USED FOR UNKNOWN INDICATION
     Dosage: 50/325, 2 TABLETS DAILY PRN
     Route: 048
     Dates: start: 20130207
  9. VANCOMYCIN [Concomitant]
     Indication: PRODUCT USED FOR UNKNOWN INDICATION
     Route: 048
     Dates: start: 20130208, end: 20130214
  10. TRAMADOL [Concomitant]
     Indication: PRODUCT USED FOR UNKNOWN INDICATION
     Dosage: AT BEDTIME
     Route: 048
     Dates: start: 20120607
  11. GABAPENTIN [Concomitant]
     Indication: PRODUCT USED FOR UNKNOWN INDICATION
     Dosage: AT BEDTIME
     Route: 048
     Dates: start: 201206
  12. BENTYL [Concomitant]
     Indication: PRODUCT USED FOR UNKNOWN INDICATION
     Dosage: AS NEEDED
     Route: 048
     Dates: start: 20130207
  13. CARAFATE [Concomitant]
     Indication: PRODUCT USED FOR UNKNOWN INDICATION
     Route: 048
  14. CLONAZEPAM [Concomitant]
     Indication: DEPRESSION
     Dosage: AT BEDTIME
     Route: 048
     Dates: start: 2011
  15. AMBIEN [Concomitant]
     Indication: DEPRESSION
     Dosage: AT BEDTIME
     Route: 048
     Dates: start: 2011

REACTIONS (11)
  - Colitis [Recovered/Resolved]
  - Bacterial infection [Unknown]
  - Pharyngitis [Recovered/Resolved]
  - Gastric infection [Recovered/Resolved]
  - Pulmonary fibrosis [Not Recovered/Not Resolved]
  - Gastritis [Not Recovered/Not Resolved]
  - Haemoglobin decreased [Not Recovered/Not Resolved]
  - Pain [Unknown]
  - Localised infection [Recovered/Resolved]
  - Blood glucose increased [Not Recovered/Not Resolved]
  - Infected skin ulcer [Recovering/Resolving]
